FAERS Safety Report 6697817-X (Version None)
Quarter: 2010Q2

REPORT INFORMATION
  Report Type: 
  Country: None (occurrence: None)
  Receive Date: 20100423
  Receipt Date: 20100413
  Transmission Date: 20101027
  Serious: No
  Sender: FDA-Public Use
  Company Number: ES-GUERBET-20100006

PATIENT
  Age: 67 Year
  Sex: Male

DRUGS (1)
  1. HEXABRIX [Suspect]
     Indication: ARTERIOGRAM CORONARY
     Dosage: UNSPECIFIED INTERVAL
     Dates: start: 20100413, end: 20100413

REACTIONS (3)
  - COUGH [None]
  - DYSPHONIA [None]
  - PRURITUS [None]
